FAERS Safety Report 6393821-X (Version None)
Quarter: 2009Q4

REPORT INFORMATION
  Report Type: 
  Country: None (occurrence: None)
  Receive Date: 20091008
  Receipt Date: 20090925
  Transmission Date: 20100525
  Serious: Yes (Other)
  Sender: FDA-Public Use
  Company Number: JP-PFIZER INC-2009275539

PATIENT

DRUGS (1)
  1. CORTRIL [Suspect]
     Indication: DISSEMINATED INTRAVASCULAR COAGULATION
     Route: 048

REACTIONS (1)
  - ELECTROLYTE DEPLETION [None]
